FAERS Safety Report 25168085 (Version 1)
Quarter: 2025Q2

REPORT INFORMATION
  Report Type: Spontaneous
  Country: US (occurrence: US)
  Receive Date: 20250407
  Receipt Date: 20250407
  Transmission Date: 20250716
  Serious: Yes (Hospitalization)
  Sender: MYLAN
  Company Number: US-MYLANLABS-2025M1029199

PATIENT
  Age: 39 Year
  Sex: Male

DRUGS (2)
  1. METOPROLOL [Suspect]
     Active Substance: METOPROLOL
     Indication: Hypertension
  2. METOPROLOL [Suspect]
     Active Substance: METOPROLOL
     Indication: Palpitations

REACTIONS (1)
  - Arrhythmia [Recovering/Resolving]
